FAERS Safety Report 7571920-4 (Version None)
Quarter: 2011Q2

REPORT INFORMATION
  Report Type: 
  Country: None (occurrence: None)
  Receive Date: 20110624
  Receipt Date: 20101201
  Transmission Date: 20111010
  Serious: No
  Sender: FDA-Public Use
  Company Number: A0898177A

PATIENT
  Age: 63 Year
  Sex: Female
  Weight: 102.3 kg

DRUGS (2)
  1. VERAMYST [Suspect]
     Route: 045
     Dates: start: 20070101
  2. FLU SHOT [Suspect]
     Indication: PROPHYLAXIS
     Route: 065

REACTIONS (2)
  - TRIGEMINAL NEURALGIA [None]
  - FACIAL PAIN [None]
